FAERS Safety Report 5265564-7 (Version None)
Quarter: 2007Q1

REPORT INFORMATION
  Report Type: 
  Country: None (occurrence: None)
  Receive Date: 20061213
  Receipt Date: 20040415
  Transmission Date: 20070707
  Serious: Yes (Other)
  Sender: FDA-Public Use
  Company Number: 2004UW07686

PATIENT
  Age: 51 Year
  Sex: Male
  Weight: 72.5755 kg

DRUGS (3)
  1. IRESSA [Suspect]
     Indication: GLIOBLASTOMA
     Dosage: 500 MG QD PO
     Route: 048
  2. DECADRON [Concomitant]
  3. TEMAZEPAM [Concomitant]

REACTIONS (5)
  - ACNE [None]
  - DRY SKIN [None]
  - FURUNCLE [None]
  - NAIL DISORDER [None]
  - RASH [None]
